FAERS Safety Report 23264315 (Version 1)
Quarter: 2023Q4

REPORT INFORMATION
  Report Type: Spontaneous
  Country: US (occurrence: US)
  Receive Date: 20231205
  Receipt Date: 20231205
  Transmission Date: 20240110
  Serious: No
  Sender: FDA-Public Use
  Company Number: US-IDORSIA-007249-2023-US

PATIENT
  Sex: Female

DRUGS (4)
  1. QUVIVIQ [Suspect]
     Active Substance: DARIDOREXANT
     Indication: Insomnia
     Dosage: 50 MG, QD
     Route: 048
     Dates: end: 20231116
  2. QUVIVIQ [Suspect]
     Active Substance: DARIDOREXANT
     Dosage: 25 MG, QD
     Route: 048
  3. PROGESTERONE [Concomitant]
     Active Substance: PROGESTERONE
     Dosage: 100 MG
  4. LEVOTHYROXINE SODIUM [Concomitant]
     Active Substance: LEVOTHYROXINE SODIUM
     Indication: Thyroid disorder

REACTIONS (7)
  - Sleep terror [Not Recovered/Not Resolved]
  - Nightmare [Not Recovered/Not Resolved]
  - Somnolence [Not Recovered/Not Resolved]
  - Anxiety [Not Recovered/Not Resolved]
  - Stress [Not Recovered/Not Resolved]
  - Wrong technique in product usage process [Unknown]
  - Feeling abnormal [Not Recovered/Not Resolved]
